FAERS Safety Report 19585055 (Version 9)
Quarter: 2022Q4

REPORT INFORMATION
  Report Type: Report from Study
  Country: US (occurrence: US)
  Receive Date: 20210720
  Receipt Date: 20221123
  Transmission Date: 20230112
  Serious: Yes (Hospitalization)
  Sender: FDA-Public Use
  Company Number: US-PFIZER INC-2021848867

PATIENT
  Age: 18 Year
  Sex: Male
  Weight: 71.5 kg

DRUGS (13)
  1. VINCRISTINE SULFATE [Suspect]
     Active Substance: VINCRISTINE SULFATE
     Indication: Philadelphia positive acute lymphocytic leukaemia
     Dosage: 2 MG, ONCE
     Route: 042
     Dates: start: 20200522
  2. RUXOLITINIB [Suspect]
     Active Substance: RUXOLITINIB
     Indication: Philadelphia positive acute lymphocytic leukaemia
     Dosage: 85 MG, BID 14 DAYS ON/14 DAYS OFF, TABLET
     Route: 048
     Dates: start: 20200522
  3. METHOTREXATE [Suspect]
     Active Substance: METHOTREXATE
     Indication: Philadelphia positive acute lymphocytic leukaemia
     Dosage: 35 MG, WEEKLY TABLET
     Route: 048
     Dates: start: 20200522, end: 20210522
  4. METHOTREXATE [Suspect]
     Active Substance: METHOTREXATE
     Dosage: 35 MG, WEEKLY TABLET
     Route: 048
     Dates: start: 20210525
  5. METHOTREXATE [Suspect]
     Active Substance: METHOTREXATE
     Dosage: 35 MG, WEEKLY TABLET
     Route: 048
     Dates: start: 20210622
  6. MERCAPTOPURINE [Suspect]
     Active Substance: MERCAPTOPURINE
     Indication: Philadelphia positive acute lymphocytic leukaemia
     Dosage: 125 MG QD/X5 AND 150 MG QD/X2, TABLET
     Route: 048
     Dates: start: 20200522, end: 20210522
  7. MERCAPTOPURINE [Suspect]
     Active Substance: MERCAPTOPURINE
     Dosage: 125 MG QD/X5 AND 150 MG QD/X2, TABLET
     Route: 048
     Dates: start: 20210525
  8. MERCAPTOPURINE [Suspect]
     Active Substance: MERCAPTOPURINE
     Dosage: 125 MG QD/X5 AND 150 MG QD/X2, TABLET
     Route: 048
     Dates: start: 20210622
  9. PREDNISONE [Suspect]
     Active Substance: PREDNISONE
     Indication: Philadelphia positive acute lymphocytic leukaemia
     Dosage: 35 MG, BID X 5 TABLET
     Route: 048
     Dates: start: 20200522
  10. SULFAMETHOXAZOLE\TRIMETHOPRIM [Concomitant]
     Active Substance: SULFAMETHOXAZOLE\TRIMETHOPRIM
     Dosage: UNK
     Dates: start: 201707, end: 20200929
  11. DAPSONE [Concomitant]
     Active Substance: DAPSONE
     Dosage: UNK
     Dates: start: 20200929, end: 20201013
  12. ATOVAQUONE [Concomitant]
     Active Substance: ATOVAQUONE
     Dosage: UNK
     Dates: start: 20201013
  13. VALACYCLOVIR [Concomitant]
     Active Substance: VALACYCLOVIR HYDROCHLORIDE
     Dosage: UNK
     Dates: start: 20200528

REACTIONS (6)
  - Pneumocystis jirovecii pneumonia [Recovered/Resolved]
  - Sepsis [Recovered/Resolved]
  - Haemoglobin decreased [Recovered/Resolved]
  - Pyrexia [Recovered/Resolved]
  - Chills [Recovered/Resolved]
  - Acute respiratory distress syndrome [Recovered/Resolved]

NARRATIVE: CASE EVENT DATE: 20210604
